FAERS Safety Report 11967325 (Version 3)
Quarter: 2016Q1

REPORT INFORMATION
  Report Type: Spontaneous
  Country: IT (occurrence: IT)
  Receive Date: 20160127
  Receipt Date: 20160303
  Transmission Date: 20160526
  Serious: Yes (Hospitalization)
  Sender: FDA-Public Use
  Company Number: IT-SA-2016SA013216

PATIENT
  Age: 48 Year
  Sex: Male

DRUGS (8)
  1. CLEXANE [Suspect]
     Active Substance: ENOXAPARIN SODIUM
     Indication: ANTIBIOTIC PROPHYLAXIS
     Dosage: DOSE: 4000 IU IN THOUSAND
     Route: 058
     Dates: start: 20160106, end: 20160114
  2. VANCOCINE [Suspect]
     Active Substance: VANCOMYCIN
     Indication: ANTIBIOTIC PROPHYLAXIS
     Route: 041
     Dates: start: 20160106, end: 20160113
  3. DALACIN C PHOSPHATE [Suspect]
     Active Substance: CLINDAMYCIN PHOSPHATE
     Indication: ANTIBIOTIC PROPHYLAXIS
     Route: 041
     Dates: start: 20160106, end: 20160113
  4. CLEXANE [Suspect]
     Active Substance: ENOXAPARIN SODIUM
     Indication: ANTIBIOTIC PROPHYLAXIS
     Dosage: DOSE: 4000 IU IN THOUSAND
     Route: 058
     Dates: start: 20160106, end: 20160114
  5. DALACIN C PHOSPHATE [Suspect]
     Active Substance: CLINDAMYCIN PHOSPHATE
     Indication: ANTIBIOTIC PROPHYLAXIS
     Route: 041
     Dates: start: 20160106, end: 20160113
  6. MERREM [Suspect]
     Active Substance: MEROPENEM
     Indication: ANTIBIOTIC PROPHYLAXIS
     Route: 041
     Dates: start: 20160106, end: 20160112
  7. MERREM [Suspect]
     Active Substance: MEROPENEM
     Indication: ANTIBIOTIC PROPHYLAXIS
     Route: 041
     Dates: start: 20160106, end: 20160112
  8. VANCOCINE [Suspect]
     Active Substance: VANCOMYCIN
     Indication: ANTIBIOTIC PROPHYLAXIS
     Route: 041
     Dates: start: 20160106, end: 20160113

REACTIONS (1)
  - Stevens-Johnson syndrome [Recovered/Resolved]

NARRATIVE: CASE EVENT DATE: 20160111
